FAERS Safety Report 9161042 (Version 1)
Quarter: 2013Q1

REPORT INFORMATION
  Report Type: Spontaneous
  Country: BR (occurrence: BR)
  Receive Date: 20130313
  Receipt Date: 20130313
  Transmission Date: 20140127
  Serious: Yes (Death, Other)
  Sender: FDA-Public Use
  Company Number: BR-ALEXION PHARMACEUTICALS INC.-A201300429

PATIENT
  Age: 12 Year
  Sex: Female

DRUGS (2)
  1. SOLIRIS 300MG [Suspect]
     Indication: HAEMOLYTIC URAEMIC SYNDROME
     Dosage: UNK
     Route: 042
     Dates: start: 20120810
  2. SOLIRIS 300MG [Suspect]
     Dosage: 1600 MG, Q2W
     Route: 042
     Dates: end: 20121207

REACTIONS (6)
  - Haemorrhage [Fatal]
  - Anuria [Unknown]
  - Generalised oedema [Unknown]
  - Platelet count decreased [Recovering/Resolving]
  - Renal impairment [Unknown]
  - Haemoglobin decreased [Unknown]
